FAERS Safety Report 8121177-0 (Version None)
Quarter: 2012Q1

REPORT INFORMATION
  Report Type: 
  Country: None (occurrence: None)
  Receive Date: 20120208
  Receipt Date: 20120201
  Transmission Date: 20120608
  Serious: Yes (Hospitalization)
  Sender: FDA-Public Use
  Company Number: US-TEVA-318239USA

PATIENT
  Age: 48 Year
  Sex: Male

DRUGS (2)
  1. SIMVASTATIN [Concomitant]
  2. METFORMIN HCL [Suspect]
     Dosage: 1000 MILLIGRAM;

REACTIONS (4)
  - ABDOMINAL PAIN [None]
  - MALAISE [None]
  - HEPATOTOXICITY [None]
  - FATIGUE [None]
